FAERS Safety Report 6884611-X (Version None)
Quarter: 2010Q3

REPORT INFORMATION
  Report Type: 
  Country: None (occurrence: None)
  Receive Date: 20100729
  Receipt Date: 20070717
  Transmission Date: 20110219
  Serious: No
  Sender: FDA-Public Use
  Company Number: US-PFIZER INC-2007059556

PATIENT
  Sex: Female
  Weight: 79.5 kg

DRUGS (6)
  1. CELEBREX [Suspect]
     Indication: RHEUMATOID ARTHRITIS
     Dates: end: 20070701
  2. CELEBREX [Suspect]
     Indication: OSTEOARTHRITIS
  3. TRAMADOL HYDROCHLORIDE [Concomitant]
  4. LEVOTHYROXINE SODIUM [Concomitant]
  5. ACETYLSALICYLIC ACID SRT [Concomitant]
  6. LISINOPRIL [Concomitant]

REACTIONS (2)
  - ALOPECIA [None]
  - FEELING ABNORMAL [None]
